FAERS Safety Report 6335454-7 (Version None)
Quarter: 2009Q3

REPORT INFORMATION
  Report Type: 
  Country: None (occurrence: None)
  Receive Date: 20090831
  Receipt Date: 20090817
  Transmission Date: 20100115
  Serious: Yes (Hospitalization)
  Sender: FDA-Public Use
  Company Number: NL-MYLANLABS-2009S1014621

PATIENT
  Age: 69 Year
  Sex: Female
  Weight: 62 kg

DRUGS (5)
  1. ACYCLOVIR [Suspect]
     Indication: EPSTEIN-BARR VIRUS INFECTION
     Dosage: 600MG (10 MG/KG) THREE TIMES A DAY
     Route: 042
  2. MYCOPHENOLATE MOFETIL [Concomitant]
     Indication: IMMUNOSUPPRESSION
     Dosage: DOSAGE NOT STATED
  3. PREDNISOLONE [Concomitant]
     Indication: IMMUNOSUPPRESSION
     Dosage: DOSAGE NOT STATED
  4. DIGOXIN [Concomitant]
     Indication: ATRIAL FIBRILLATION
     Dosage: DOSAGE NOT STATED
  5. ACENOCOUMAROL [Concomitant]
     Indication: ATRIAL FIBRILLATION
     Dosage: DOSAGE NOT STATED

REACTIONS (1)
  - NEUROTOXICITY [None]
